FAERS Safety Report 13663066 (Version 2)
Quarter: 2017Q2

REPORT INFORMATION
  Report Type: Spontaneous
  Country: CO (occurrence: CO)
  Receive Date: 20170619
  Receipt Date: 20170623
  Transmission Date: 20170830
  Serious: Yes (Other)
  Sender: FDA-Public Use
  Company Number: CO-ROCHE-1944552

PATIENT
  Sex: Female

DRUGS (7)
  1. ETANERCEPT [Suspect]
     Active Substance: ETANERCEPT
     Indication: RHEUMATOID ARTHRITIS
     Route: 058
     Dates: start: 201301
  2. METHOTREXATE. [Suspect]
     Active Substance: METHOTREXATE
     Indication: RHEUMATOID ARTHRITIS
     Dosage: 4 TAB EACH WEEKS
     Route: 048
     Dates: start: 201301
  3. TOCILIZUMAB [Suspect]
     Active Substance: TOCILIZUMAB
     Indication: RHEUMATOID ARTHRITIS
     Route: 065
     Dates: start: 201612
  4. ETANERCEPT [Suspect]
     Active Substance: ETANERCEPT
     Dosage: PRE-FILLED PEN
     Route: 058
     Dates: start: 20130123, end: 201407
  5. GOLIMUMAB [Suspect]
     Active Substance: GOLIMUMAB
     Indication: RHEUMATOID ARTHRITIS
     Route: 065
     Dates: start: 201408
  6. LEFLUNOMIDE. [Suspect]
     Active Substance: LEFLUNOMIDE
     Indication: RHEUMATOID ARTHRITIS
     Route: 048
     Dates: start: 201301
  7. CORTISONE [Concomitant]
     Active Substance: CORTISONE\HYDROCORTISONE

REACTIONS (8)
  - C-reactive protein decreased [Unknown]
  - Osteoporosis [Unknown]
  - Immunosuppression [Recovered/Resolved]
  - Drug use disorder [Unknown]
  - Toxicity to various agents [Unknown]
  - Toxic skin eruption [Recovered/Resolved]
  - Hypersensitivity [Recovered/Resolved]
  - Injury [Recovered/Resolved]
